FAERS Safety Report 12398803 (Version 2)
Quarter: 2016Q4

REPORT INFORMATION
  Report Type: Spontaneous
  Country: US (occurrence: US)
  Receive Date: 20160524
  Receipt Date: 20161025
  Transmission Date: 20170207
  Serious: No
  Sender: FDA-Public Use
  Company Number: US-PFIZER INC-2016046273

PATIENT
  Age: 80 Year
  Sex: Female
  Weight: 49.9 kg

DRUGS (2)
  1. LYRICA [Suspect]
     Active Substance: PREGABALIN
     Indication: NEURALGIA
  2. LYRICA [Suspect]
     Active Substance: PREGABALIN
     Indication: NEUROPATHY PERIPHERAL
     Dosage: 75 MG, 2X/DAY
     Route: 048
     Dates: start: 20151223

REACTIONS (3)
  - Pain [Unknown]
  - Intentional product use issue [Unknown]
  - Drug dose omission [Unknown]
